FAERS Safety Report 23650191 (Version 3)
Quarter: 2025Q1

REPORT INFORMATION
  Report Type: Report from Study
  Country: CA (occurrence: CA)
  Receive Date: 20240319
  Receipt Date: 20250324
  Transmission Date: 20250409
  Serious: Yes (Other)
  Sender: TAKEDA
  Company Number: CA-TAKEDA-2024TUS024128

PATIENT
  Sex: Female
  Weight: 57 kg

DRUGS (3)
  1. VEDOLIZUMAB [Suspect]
     Active Substance: VEDOLIZUMAB
     Indication: Colitis ulcerative
  2. VEDOLIZUMAB [Suspect]
     Active Substance: VEDOLIZUMAB
     Dosage: 300 MILLIGRAM, Q4WEEKS
  3. Salofalk [Concomitant]

REACTIONS (6)
  - Clostridium difficile infection [Unknown]
  - Abnormal faeces [Unknown]
  - Frequent bowel movements [Unknown]
  - Abdominal pain [Unknown]
  - Back pain [Unknown]
  - Off label use [Unknown]
